FAERS Safety Report 24833814 (Version 1)
Quarter: 2025Q1

REPORT INFORMATION
  Report Type: Spontaneous
  Country: US (occurrence: US)
  Receive Date: 20250112
  Receipt Date: 20250112
  Transmission Date: 20250408
  Serious: Yes (Hospitalization)
  Sender: CIPLA
  Company Number: US-CIPLA LTD.-2024US15739

PATIENT

DRUGS (2)
  1. ALBUTEROL [Suspect]
     Active Substance: ALBUTEROL
     Indication: Wheezing
     Dates: start: 20241129
  2. ALBUTEROL [Suspect]
     Active Substance: ALBUTEROL
     Indication: Bronchitis

REACTIONS (3)
  - Bronchitis [Unknown]
  - Drug dose omission by device [Unknown]
  - Device delivery system issue [Unknown]

NARRATIVE: CASE EVENT DATE: 20241223
